FAERS Safety Report 16689458 (Version 3)
Quarter: 2019Q4

REPORT INFORMATION
  Report Type: Spontaneous
  Country: US (occurrence: US)
  Receive Date: 20190809
  Receipt Date: 20191031
  Transmission Date: 20200122
  Serious: No
  Sender: FDA-Public Use
  Company Number: US-PFIZER INC-2018461232

PATIENT
  Age: 27 Year
  Sex: Female
  Weight: 75.28 kg

DRUGS (1)
  1. PREMARIN [Suspect]
     Active Substance: ESTROGENS, CONJUGATED
     Indication: HYSTERECTOMY
     Dosage: 0.625 MG, 2X/DAY
     Route: 048
     Dates: start: 1987

REACTIONS (4)
  - Therapeutic response unexpected [Unknown]
  - Intentional product misuse [Unknown]
  - Off label use [Unknown]
  - Product use in unapproved indication [Unknown]

NARRATIVE: CASE EVENT DATE: 1987
